FAERS Safety Report 7781816-0 (Version None)
Quarter: 2011Q3

REPORT INFORMATION
  Report Type: 
  Country: None (occurrence: None)
  Receive Date: 20110927
  Receipt Date: 20110921
  Transmission Date: 20111222
  Serious: Yes (Hospitalization)
  Sender: FDA-Public Use
  Company Number: IT-GLAXOSMITHKLINE-B0750295A

PATIENT
  Sex: Female

DRUGS (4)
  1. LASIX [Concomitant]
  2. ENALAPRIL MALEATE [Concomitant]
  3. LANOXIN [Suspect]
     Indication: PRODUCT USED FOR UNKNOWN INDICATION
     Dosage: .125MG PER DAY
     Route: 048
     Dates: start: 20100709, end: 20110708
  4. SINTROM [Concomitant]

REACTIONS (1)
  - BRADYCARDIA [None]
